FAERS Safety Report 10065508 (Version 2)
Quarter: 2014Q2

REPORT INFORMATION
  Report Type: Report from Study
  Country: US (occurrence: US)
  Receive Date: 20140408
  Receipt Date: 20140408
  Transmission Date: 20141212
  Serious: Yes (Hospitalization)
  Sender: FDA-Public Use
  Company Number: US-BAYER-2013-149611

PATIENT
  Age: 53 Year
  Sex: Female

DRUGS (1)
  1. STIVARGA [Suspect]
     Indication: GASTROINTESTINAL STROMAL CANCER
     Dosage: 160 MG, QD, 4*40 MG
     Route: 048
     Dates: start: 201310

REACTIONS (2)
  - Diarrhoea [None]
  - Hernia [None]
